FAERS Safety Report 5688932-8 (Version None)
Quarter: 2008Q1

REPORT INFORMATION
  Report Type: 
  Country: None (occurrence: None)
  Receive Date: 20080331
  Receipt Date: 20080324
  Transmission Date: 20080703
  Serious: Yes (Death, Life-Threatening, Hospitalization)
  Sender: FDA-Public Use
  Company Number: US-GENENTECH-257000

PATIENT
  Sex: Female
  Weight: 81.8 kg

DRUGS (16)
  1. RITUXIMAB [Suspect]
     Indication: RHEUMATOID ARTHRITIS
     Dosage: 1000 MG, UNK
     Route: 042
     Dates: start: 20070810
  2. STEROIDS - UNKNOWN TYPE [Concomitant]
     Indication: SARCOIDOSIS
  3. ROCEPHIN [Concomitant]
     Indication: PNEUMONIA
  4. ROCEPHIN [Concomitant]
     Indication: SEPSIS
  5. LINEZOLID [Concomitant]
     Indication: PNEUMONIA
  6. LINEZOLID [Concomitant]
     Indication: SEPSIS
  7. CEFTAZIDIME SODIUM [Concomitant]
     Indication: PNEUMONIA
  8. CEFTAZIDIME SODIUM [Concomitant]
     Indication: SEPSIS
  9. TAMIFLU [Concomitant]
     Indication: PNEUMONIA
  10. TAMIFLU [Concomitant]
     Indication: SEPSIS
  11. INVANZ [Concomitant]
     Indication: PNEUMONIA
  12. INVANZ [Concomitant]
     Indication: SEPSIS
  13. FLAGYL [Concomitant]
     Indication: PNEUMONIA
  14. FLAGYL [Concomitant]
     Indication: SEPSIS
  15. DIFLUCAN [Concomitant]
     Indication: PNEUMONIA
  16. DIFLUCAN [Concomitant]
     Indication: SEPSIS

REACTIONS (1)
  - DEATH [None]
